FAERS Safety Report 9109214 (Version 2)
Quarter: 2013Q1

REPORT INFORMATION
  Report Type: Spontaneous
  Country: US (occurrence: US)
  Receive Date: 20130222
  Receipt Date: 20130319
  Transmission Date: 20140127
  Serious: Yes (Hospitalization, Other)
  Sender: FDA-Public Use
  Company Number: US-PFIZER INC-2013064281

PATIENT
  Age: 49 Year
  Sex: Male
  Weight: 109 kg

DRUGS (2)
  1. GLUCOTROL [Suspect]
     Indication: BLOOD GLUCOSE INCREASED
     Dosage: 10 MG, 2X/DAY
     Route: 048
     Dates: start: 2012
  2. NEURONTIN [Suspect]
     Indication: NEURALGIA
     Dosage: 300 MG, 3X/DAY
     Route: 048
     Dates: start: 2012

REACTIONS (2)
  - Appendicitis perforated [Unknown]
  - Glycosylated haemoglobin increased [Unknown]
